FAERS Safety Report 9669580 (Version 1)
Quarter: 2013Q4

REPORT INFORMATION
  Report Type: Spontaneous
  Country: US (occurrence: None)
  Receive Date: 20131104
  Receipt Date: 20131104
  Transmission Date: 20140711
  Serious: Yes (Other)
  Sender: FDA-Public Use
  Company Number: None

PATIENT
  Age: 32 Year
  Sex: Female
  Weight: 132.45 kg

DRUGS (1)
  1. MIRENA [Suspect]

REACTIONS (4)
  - Device dislocation [None]
  - Metrorrhagia [None]
  - Muscle spasms [None]
  - Pain [None]
